FAERS Safety Report 25418364 (Version 1)
Quarter: 2025Q2

REPORT INFORMATION
  Report Type: Spontaneous
  Country: US (occurrence: US)
  Receive Date: 20250610
  Receipt Date: 20250610
  Transmission Date: 20250717
  Serious: No
  Sender: ROCHE
  Company Number: US-ROCHE-10000289098

PATIENT
  Age: 42 Year
  Sex: Female
  Weight: 54.43 kg

DRUGS (1)
  1. OCREVUS [Suspect]
     Active Substance: OCRELIZUMAB
     Indication: Multiple sclerosis
     Route: 065
     Dates: start: 2022, end: 202403

REACTIONS (1)
  - T-lymphocyte count decreased [Recovering/Resolving]

NARRATIVE: CASE EVENT DATE: 20230301
